FAERS Safety Report 9243333 (Version 4)
Quarter: 2013Q4

REPORT INFORMATION
  Report Type: Spontaneous
  Country: US (occurrence: US)
  Receive Date: 20130420
  Receipt Date: 20131230
  Transmission Date: 20140711
  Serious: Yes (Hospitalization)
  Sender: FDA-Public Use
  Company Number: US-B.I. PHARMACEUTICALS,INC./RIDGEFIELD-2013-BI-09718BP

PATIENT
  Age: 80 Year
  Sex: Female
  Weight: 81.65 kg

DRUGS (11)
  1. PRADAXA [Suspect]
     Indication: ATRIAL FIBRILLATION
     Dosage: 300 MG
     Route: 048
     Dates: start: 20110531, end: 20110829
  2. FISH OIL [Concomitant]
     Route: 048
  3. VITAMIN C [Concomitant]
     Route: 048
  4. VITAMIN D [Concomitant]
     Dosage: 2000 U
     Route: 048
  5. IRON SUPPLEMENT [Concomitant]
  6. POTASSIUM CHLORIDE [Concomitant]
     Dosage: 10 MEQ
     Route: 048
  7. VYTORIN [Concomitant]
     Route: 048
     Dates: start: 200301
  8. ATENOLOL [Concomitant]
     Dosage: 25 MG
     Route: 048
     Dates: start: 200301
  9. SYNTHROID [Concomitant]
     Dosage: 75 MCG
     Route: 048
     Dates: start: 200301
  10. MAGNESIUM CHLORIDE [Concomitant]
     Dosage: 250 MG
     Route: 048
  11. MULTIVITAMIN [Concomitant]
     Route: 048

REACTIONS (5)
  - Upper gastrointestinal haemorrhage [Recovered/Resolved]
  - Haemorrhagic anaemia [Unknown]
  - Shock haemorrhagic [Unknown]
  - Thrombocytopenia [Unknown]
  - Coagulopathy [Unknown]
